FAERS Safety Report 17765521 (Version 2)
Quarter: 2020Q2

REPORT INFORMATION
  Report Type: Spontaneous
  Country: US (occurrence: US)
  Receive Date: 20200511
  Receipt Date: 20200609
  Transmission Date: 20200714
  Serious: No
  Sender: FDA-Public Use
  Company Number: US-SA-2020SA116093

PATIENT

DRUGS (1)
  1. DUPIXENT [Suspect]
     Active Substance: DUPILUMAB
     Indication: ATOPY
     Dosage: 300 MG, QOW
     Route: 058
     Dates: start: 20200414

REACTIONS (6)
  - Oligomenorrhoea [Unknown]
  - Dry skin [Unknown]
  - Injection site erythema [Unknown]
  - Product use in unapproved indication [Unknown]
  - Product dose omission [Unknown]
  - Injection site swelling [Unknown]

NARRATIVE: CASE EVENT DATE: 202004
